FAERS Safety Report 6287296-9 (Version None)
Quarter: 2009Q3

REPORT INFORMATION
  Report Type: 
  Country: None (occurrence: None)
  Receive Date: 20090728
  Receipt Date: 20090723
  Transmission Date: 20100115
  Serious: Yes (Death, Hospitalization, Other)
  Sender: FDA-Public Use
  Company Number: PHHO2009FR06681

PATIENT
  Sex: Male

DRUGS (3)
  1. RAD 666 RAD+TAB [Suspect]
     Indication: NEUROENDOCRINE TUMOUR
     Dosage: 10 MG
     Route: 048
     Dates: start: 20090310, end: 20090526
  2. COVERSYL [Concomitant]
  3. ATROVENT [Concomitant]

REACTIONS (28)
  - ACUTE PULMONARY OEDEMA [None]
  - AORTIC CALCIFICATION [None]
  - AORTIC STENOSIS [None]
  - ASTHENIA [None]
  - ATRIAL FLUTTER [None]
  - AZOTAEMIA [None]
  - CARDIAC ARREST [None]
  - CARDIAC MURMUR [None]
  - CARDIOGENIC SHOCK [None]
  - CREPITATIONS [None]
  - DECREASED APPETITE [None]
  - DEPRESSED LEVEL OF CONSCIOUSNESS [None]
  - DYSPNOEA [None]
  - DYSPNOEA EXERTIONAL [None]
  - EJECTION FRACTION DECREASED [None]
  - EMPHYSEMA [None]
  - HYPOTENSION [None]
  - INTERVERTEBRAL DISC DISORDER [None]
  - LEFT VENTRICULAR HYPERTROPHY [None]
  - OEDEMA PERIPHERAL [None]
  - ORTHOPNOEA [None]
  - OSTEOPENIA [None]
  - PAIN [None]
  - PALLOR [None]
  - PLEURAL EFFUSION [None]
  - PULMONARY FIBROSIS [None]
  - RENAL FAILURE ACUTE [None]
  - WEIGHT DECREASED [None]
